FAERS Safety Report 4527241-7 (Version None)
Quarter: 2004Q4

REPORT INFORMATION
  Report Type: 
  Country: None (occurrence: None)
  Receive Date: 20041130
  Receipt Date: 20040805
  Transmission Date: 20050328
  Serious: No
  Sender: FDA-Public Use
  Company Number: FABR-10716

PATIENT
  Age: 49 Year
  Sex: Female
  Weight: 80 kg

DRUGS (6)
  1. FABRAZYME [Suspect]
     Indication: FABRY'S DISEASE
     Dosage: 70 MG/KG Q2WKS IV
     Route: 042
     Dates: start: 20030329
  2. ACETAMINOPHEN [Concomitant]
  3. LORATADINE [Concomitant]
  4. PREDNISONE [Concomitant]
  5. RANITIDINE [Concomitant]
  6. PARACETAMOL [Concomitant]

REACTIONS (4)
  - EXANTHEM [None]
  - FACE OEDEMA [None]
  - FACIAL PALSY [None]
  - PRURITUS [None]
